FAERS Safety Report 20673001 (Version 1)
Quarter: 2022Q2

REPORT INFORMATION
  Report Type: Spontaneous
  Country: US (occurrence: None)
  Receive Date: 20220403
  Receipt Date: 20220403
  Transmission Date: 20220721
  Serious: Yes (Life-Threatening)
  Sender: FDA-Public Use
  Company Number: None

PATIENT
  Age: 95 Year
  Sex: Male
  Weight: 65.77 kg

DRUGS (2)
  1. CARVEDILOL [Suspect]
     Active Substance: CARVEDILOL
     Indication: Hypertension
     Dosage: OTHER QUANTITY : 3.125MG;?FREQUENCY : TWICE A DAY;?
     Route: 048
     Dates: start: 20220304, end: 20220307
  2. CARVEDILOL [Suspect]
     Active Substance: CARVEDILOL
     Indication: Atrial fibrillation

REACTIONS (3)
  - Hypotension [None]
  - Incorrect dose administered [None]
  - Product use issue [None]

NARRATIVE: CASE EVENT DATE: 20220307
